FAERS Safety Report 25183306 (Version 1)
Quarter: 2025Q2

REPORT INFORMATION
  Report Type: Spontaneous
  Country: KR (occurrence: KR)
  Receive Date: 20250410
  Receipt Date: 20250410
  Transmission Date: 20250717
  Serious: Yes (Hospitalization)
  Sender: MYLAN
  Company Number: KR-MYLANLABS-2025M1028329

PATIENT
  Sex: Female
  Weight: 56.1 kg

DRUGS (4)
  1. CELECOXIB [Suspect]
     Active Substance: CELECOXIB
     Indication: Spinal stenosis
     Dosage: 200 MILLIGRAM, BID
     Dates: start: 20230315, end: 20230521
  2. NEURONTIN [Suspect]
     Active Substance: GABAPENTIN
     Indication: Spinal stenosis
     Dosage: 1 DOSAGE FORM, BID
     Dates: start: 20230315, end: 20230521
  3. LIMAPROST [Suspect]
     Active Substance: LIMAPROST
     Indication: Spinal stenosis
     Dosage: 1 DOSAGE FORM, BID
     Dates: start: 20230323, end: 20230521
  4. LAFUTIDINE [Suspect]
     Active Substance: LAFUTIDINE
     Indication: Spinal stenosis
     Dosage: 1 DOSAGE FORM, BID
     Dates: start: 20230315, end: 20230521

REACTIONS (2)
  - Tremor [Recovered/Resolved]
  - Pain [Recovered/Resolved]

NARRATIVE: CASE EVENT DATE: 20230501
